FAERS Safety Report 12930524 (Version 1)
Quarter: 2016Q4

REPORT INFORMATION
  Report Type: Spontaneous
  Country: US (occurrence: US)
  Receive Date: 20161111
  Receipt Date: 20161111
  Transmission Date: 20170207
  Serious: Yes (Hospitalization)
  Sender: FDA-Public Use
  Company Number: None

PATIENT
  Age: 81 Year
  Sex: Female
  Weight: 52.2 kg

DRUGS (1)
  1. DOXIL [Suspect]
     Active Substance: DOXORUBICIN HYDROCHLORIDE
     Dates: end: 20161024

REACTIONS (4)
  - Dysphagia [None]
  - Fluid intake reduced [None]
  - Dehydration [None]
  - Abdominal pain upper [None]

NARRATIVE: CASE EVENT DATE: 20161110
